FAERS Safety Report 19130356 (Version 1)
Quarter: 2021Q2

REPORT INFORMATION
  Report Type: Spontaneous
  Country: IQ (occurrence: IQ)
  Receive Date: 20210414
  Receipt Date: 20210414
  Transmission Date: 20210717
  Serious: Yes (Other)
  Sender: FDA-Public Use
  Company Number: IQ-AMGEN-IRQSP2021053491

PATIENT
  Age: 45 Day
  Sex: Male

DRUGS (2)
  1. FUROSEMIDE. [Concomitant]
     Active Substance: FUROSEMIDE
     Route: 065
  2. CINACALCET HCL [Suspect]
     Active Substance: CINACALCET HYDROCHLORIDE
     Indication: HYPERPARATHYROIDISM PRIMARY
     Dosage: UNK
     Route: 048

REACTIONS (5)
  - Blood calcium increased [Recovered/Resolved]
  - Off label use [Unknown]
  - Hypocalcaemia [Recovered/Resolved]
  - Therapy non-responder [Unknown]
  - Nephrocalcinosis [Unknown]
